FAERS Safety Report 8433240-5 (Version None)
Quarter: 2012Q2

REPORT INFORMATION
  Report Type: 
  Country: None (occurrence: None)
  Receive Date: 20120613
  Receipt Date: 20120605
  Transmission Date: 20120825
  Serious: Yes (Other)
  Sender: FDA-Public Use
  Company Number: CA-ROCHE-GNE303015

PATIENT
  Sex: Male
  Weight: 129.14 kg

DRUGS (11)
  1. XOLAIR [Suspect]
     Dosage: 375 MG, Q2W
     Route: 058
     Dates: start: 20100412
  2. METHADONE HCL [Suspect]
     Indication: PRODUCT USED FOR UNKNOWN INDICATION
  3. CYMBALTA [Concomitant]
     Indication: PRODUCT USED FOR UNKNOWN INDICATION
  4. RAMIPRIL [Concomitant]
     Indication: PRODUCT USED FOR UNKNOWN INDICATION
  5. DOCUSATE SODIUM [Concomitant]
     Indication: PRODUCT USED FOR UNKNOWN INDICATION
  6. SENNOSIDES A + B [Concomitant]
     Indication: PRODUCT USED FOR UNKNOWN INDICATION
  7. XOLAIR [Suspect]
     Indication: ASTHMA
     Dosage: 375 MG, Q2W
     Route: 058
     Dates: start: 20100329
  8. ADVAIR DISKUS 100/50 [Concomitant]
     Indication: PRODUCT USED FOR UNKNOWN INDICATION
  9. UNIPHYL [Concomitant]
     Indication: PRODUCT USED FOR UNKNOWN INDICATION
  10. FLOMAX (CANADA) [Concomitant]
     Indication: PRODUCT USED FOR UNKNOWN INDICATION
  11. GABAPENTIN [Concomitant]
     Indication: PRODUCT USED FOR UNKNOWN INDICATION

REACTIONS (22)
  - FEELING HOT [None]
  - SINUSITIS [None]
  - RESPIRATION ABNORMAL [None]
  - PRODUCTIVE COUGH [None]
  - NASAL CONGESTION [None]
  - NASOPHARYNGITIS [None]
  - RHINORRHOEA [None]
  - CONVULSION [None]
  - COUGH [None]
  - SINUS HEADACHE [None]
  - SPUTUM DISCOLOURED [None]
  - EYELID OEDEMA [None]
  - INSOMNIA [None]
  - OEDEMA PERIPHERAL [None]
  - HYPERHIDROSIS [None]
  - FATIGUE [None]
  - FACIAL PAIN [None]
  - LUNG INFECTION [None]
  - INFECTION [None]
  - HYPERSOMNIA [None]
  - RESPIRATORY DISORDER [None]
  - DECREASED ACTIVITY [None]
